FAERS Safety Report 4341917-6 (Version None)
Quarter: 2004Q2

REPORT INFORMATION
  Report Type: 
  Country: None (occurrence: None)
  Receive Date: 20040413
  Receipt Date: 20040406
  Transmission Date: 20050107
  Serious: Yes (Hospitalization, Other)
  Sender: FDA-Public Use
  Company Number: 2004-04-0215

PATIENT
  Age: 78 Year
  Sex: Female

DRUGS (5)
  1. CLARITIN-D 24 HOUR [Suspect]
     Dosage: ORAL
     Route: 048
     Dates: start: 20040331
  2. SYNTHROID [Concomitant]
  3. MONOPRIL [Concomitant]
  4. ASPIRIN BABY [Concomitant]
  5. ATIVAN [Concomitant]

REACTIONS (2)
  - ANXIETY [None]
  - BLOOD PRESSURE INCREASED [None]
